FAERS Safety Report 8952653 (Version 1)
Quarter: 2012Q4

REPORT INFORMATION
  Report Type: 
  Country: US (occurrence: US)
  Receive Date: 20121205
  Receipt Date: 20121205
  Transmission Date: 20130627
  Serious: No
  Sender: FDA-Public Use
  Company Number: US-MYLANLABS-2012S1017079

PATIENT
  Sex: Female

DRUGS (1)
  1. DESLORATADINE [Suspect]
     Route: 048
     Dates: start: 2012

REACTIONS (2)
  - Abdominal pain upper [Unknown]
  - Product substitution issue [None]
